FAERS Safety Report 16189596 (Version 1)
Quarter: 2019Q2

REPORT INFORMATION
  Report Type: Spontaneous
  Country: US (occurrence: US)
  Receive Date: 20190308
  Receipt Date: 20190308
  Transmission Date: 20190711
  Serious: Yes (Hospitalization)
  Sender: FDA-Public Use
  Company Number: None

PATIENT
  Age: 69 Year
  Sex: Female

DRUGS (1)
  1. ENBREL [Suspect]
     Active Substance: ETANERCEPT
     Indication: RHEUMATOID ARTHRITIS
     Dosage: ?          OTHER FREQUENCY:EVERY 5 DAYS;?
     Route: 058
     Dates: start: 20190130

REACTIONS (3)
  - Condition aggravated [None]
  - Accident [None]
  - Product dose omission [None]

NARRATIVE: CASE EVENT DATE: 20190307
